FAERS Safety Report 9542873 (Version 1)
Quarter: 2013Q2

REPORT INFORMATION
  Report Type: Spontaneous
  Country: US (occurrence: None)
  Receive Date: 20130524
  Receipt Date: 20130524
  Transmission Date: 20140414
  Serious: No
  Sender: FDA-Public Use
  Company Number: PHEH2012US025638

PATIENT
  Sex: Female
  Weight: 89.8 kg

DRUGS (16)
  1. GILENYA (FINGOLIMOD) CAPSULE, 0.5MG [Suspect]
     Indication: MULTIPLE SCLEROSIS
     Route: 048
  2. DAILY MULTIVITAMIN [Concomitant]
  3. CALCIA MAGNESIUM [Concomitant]
  4. OMEGA 3 [Concomitant]
  5. AOV VITAMIN D3 [Concomitant]
  6. LEVOTHYROXIN [Concomitant]
  7. ZOVIRAX [Concomitant]
  8. CYMBALTA [Concomitant]
  9. ESTRACE [Concomitant]
  10. COMBIGAN [Concomitant]
  11. LUMIGAN [Concomitant]
  12. MAGNESIUM [Concomitant]
  13. FOLIC ACID [Concomitant]
  14. VITAMIN B COMPLEX [Concomitant]
  15. MOVE FREE [Concomitant]
  16. CO Q 10 [Concomitant]

REACTIONS (3)
  - Hypoaesthesia [None]
  - Muscle spasms [None]
  - Headache [None]
